FAERS Safety Report 12792749 (Version 1)
Quarter: 2016Q3

REPORT INFORMATION
  Report Type: Spontaneous
  Country: RO (occurrence: RO)
  Receive Date: 20160929
  Receipt Date: 20160929
  Transmission Date: 20161109
  Serious: Yes (Other)
  Sender: FDA-Public Use
  Company Number: RO-EMD SERONO-8108641

PATIENT
  Sex: Female

DRUGS (1)
  1. REBIF [Suspect]
     Active Substance: INTERFERON BETA-1A
     Indication: MULTIPLE SCLEROSIS
     Dates: start: 2013

REACTIONS (9)
  - Illness anxiety disorder [Unknown]
  - Wrong technique in product usage process [Unknown]
  - Drug dependence [Unknown]
  - Vertigo [Unknown]
  - Dizziness [Unknown]
  - Injection site injury [Unknown]
  - Drug dose omission [Unknown]
  - Paraesthesia [Unknown]
  - Pain [Unknown]
